FAERS Safety Report 10617470 (Version 1)
Quarter: 2014Q4

REPORT INFORMATION
  Report Type: Spontaneous
  Country: US (occurrence: US)
  Receive Date: 20141201
  Receipt Date: 20141201
  Transmission Date: 20150529
  Serious: Yes (Hospitalization)
  Sender: FDA-Public Use
  Company Number: PHHY2014US153642

PATIENT
  Age: 15 Year
  Sex: Male

DRUGS (1)
  1. SULFAMETHOXAZOLE AND TRIMETHOPRIM [Suspect]
     Active Substance: SULFAMETHOXAZOLE\TRIMETHOPRIM
     Indication: STAPHYLOCOCCAL INFECTION
     Route: 065

REACTIONS (10)
  - Drug reaction with eosinophilia and systemic symptoms [Unknown]
  - Dyspnoea [Unknown]
  - Rash [Recovered/Resolved]
  - Rash pruritic [Unknown]
  - Pyrexia [Unknown]
  - Pleural effusion [Unknown]
  - Rash papular [Unknown]
  - Acute kidney injury [Unknown]
  - Rash morbilliform [Unknown]
  - Eosinophilia [Recovered/Resolved]
